FAERS Safety Report 4526949-7 (Version None)
Quarter: 2004Q4

REPORT INFORMATION
  Report Type: 
  Country: None (occurrence: None)
  Receive Date: 20041105
  Receipt Date: 20040813
  Transmission Date: 20050328
  Serious: No
  Sender: FDA-Public Use
  Company Number: 2004USFACT00006

PATIENT
  Age: 79 Year
  Sex: Male
  Weight: 51.7 kg

DRUGS (3)
  1. FACTIVE [Suspect]
     Indication: RESPIRATORY TRACT INFECTION BACTERIAL
     Dosage: 320.00 MG QD ORAL
     Route: 048
     Dates: start: 20040811, end: 20040811
  2. DYRENIUM (TRIAMTERENE) [Concomitant]
  3. ATROVENT [Concomitant]

REACTIONS (1)
  - DYSPNOEA [None]
